FAERS Safety Report 6509536-0 (Version None)
Quarter: 2009Q4

REPORT INFORMATION
  Report Type: 
  Country: None (occurrence: None)
  Receive Date: 20091217
  Receipt Date: 20091202
  Transmission Date: 20100525
  Serious: Yes (Other)
  Sender: FDA-Public Use
  Company Number: PHHY2009JP52365

PATIENT
  Age: 73 Year
  Sex: Male

DRUGS (1)
  1. VISUDYNE [Suspect]
     Indication: MACULAR DEGENERATION
     Dosage: 10.2 MG DAILY IV
     Route: 042
     Dates: start: 20091124, end: 20091124

REACTIONS (1)
  - CONVULSION [None]
